FAERS Safety Report 17266821 (Version 1)
Quarter: 2020Q1

REPORT INFORMATION
  Report Type: Spontaneous
  Country: QA (occurrence: QA)
  Receive Date: 20200114
  Receipt Date: 20200114
  Transmission Date: 20200409
  Serious: Yes (Other)
  Sender: FDA-Public Use
  Company Number: QA-PFIZER INC-2020011517

PATIENT
  Age: 26 Year
  Sex: Male

DRUGS (1)
  1. PHENYTOIN. [Suspect]
     Active Substance: PHENYTOIN
     Indication: EPILEPSY
     Dosage: UNK

REACTIONS (7)
  - Loss of proprioception [Unknown]
  - Hyporeflexia [Unknown]
  - Vasogenic cerebral oedema [Unknown]
  - Ataxia [Unknown]
  - Coordination abnormal [Unknown]
  - Toxicity to various agents [Unknown]
  - Encephalopathy [Unknown]
